FAERS Safety Report 14084199 (Version 1)
Quarter: 2017Q4

REPORT INFORMATION
  Report Type: Spontaneous
  Country: MX (occurrence: MX)
  Receive Date: 20171013
  Receipt Date: 20171013
  Transmission Date: 20180321
  Serious: Yes (Death)
  Sender: FDA-Public Use
  Company Number: MX-ROCHE-2005649

PATIENT
  Age: 63 Year
  Sex: Male

DRUGS (7)
  1. IMMUNOGLOBULIN IV [Concomitant]
     Active Substance: HUMAN IMMUNOGLOBULIN G
     Route: 065
     Dates: start: 2012
  2. FOSCARNET [Concomitant]
     Active Substance: FOSCARNET
  3. VALGANCICLOVIR. [Suspect]
     Active Substance: VALGANCICLOVIR
     Indication: ASPERGILLUS INFECTION
     Route: 065
     Dates: start: 201612
  4. PREDNISONE. [Concomitant]
     Active Substance: PREDNISONE
  5. GANCICLOVIR. [Suspect]
     Active Substance: GANCICLOVIR
     Indication: CYTOMEGALOVIRUS OESOPHAGITIS
  6. VALGANCICLOVIR. [Suspect]
     Active Substance: VALGANCICLOVIR
     Indication: CYTOMEGALOVIRUS OESOPHAGITIS
  7. GANCICLOVIR. [Suspect]
     Active Substance: GANCICLOVIR
     Indication: ASPERGILLUS INFECTION
     Route: 065

REACTIONS (1)
  - Drug resistance [Fatal]
